FAERS Safety Report 18283760 (Version 2)
Quarter: 2020Q4

REPORT INFORMATION
  Report Type: Report from Study
  Country: US (occurrence: US)
  Receive Date: 20200918
  Receipt Date: 20201208
  Transmission Date: 20210113
  Serious: Yes (Other)
  Sender: FDA-Public Use
  Company Number: US-JNJFOC-A-NJ2020-207664

PATIENT
  Age: 64 Year
  Sex: Female
  Weight: 74.6 kg

DRUGS (15)
  1. LIOTHYRONINE [Concomitant]
     Active Substance: LIOTHYRONINE
  2. ALYQ [Concomitant]
     Active Substance: TADALAFIL
     Indication: PULMONARY ARTERIAL HYPERTENSION
     Dosage: 40 MG, QD
     Dates: start: 202002
  3. POTASSIUM CHLORIDE. [Concomitant]
     Active Substance: POTASSIUM CHLORIDE
  4. SPIRONOLACTONE. [Concomitant]
     Active Substance: SPIRONOLACTONE
  5. LEVOTHYROXINE. [Concomitant]
     Active Substance: LEVOTHYROXINE
  6. OMEPRAZOLE. [Concomitant]
     Active Substance: OMEPRAZOLE
  7. UPTRAVI [Suspect]
     Active Substance: SELEXIPAG
     Route: 048
     Dates: start: 20200616
  8. LASIX [Concomitant]
     Active Substance: FUROSEMIDE
  9. TADALAFIL. [Concomitant]
     Active Substance: TADALAFIL
  10. VITAMIN B6 [Concomitant]
     Active Substance: PYRIDOXINE HYDROCHLORIDE
  11. UPTRAVI [Suspect]
     Active Substance: SELEXIPAG
     Route: 048
     Dates: start: 202006
  12. ALYQ [Concomitant]
     Active Substance: TADALAFIL
     Dosage: 20 MG, QD
  13. METOPROLOL. [Concomitant]
     Active Substance: METOPROLOL
  14. COENZYME Q10 [Concomitant]
     Active Substance: DIETARY SUPPLEMENT\UBIDECARENONE
  15. UPTRAVI [Suspect]
     Active Substance: SELEXIPAG
     Indication: PULMONARY ARTERIAL HYPERTENSION
     Route: 048

REACTIONS (8)
  - Fibromyalgia [Not Recovered/Not Resolved]
  - Diarrhoea [Recovering/Resolving]
  - Pain in extremity [Recovering/Resolving]
  - Bile acid malabsorption [Unknown]
  - Pain in jaw [Recovering/Resolving]
  - Headache [Recovering/Resolving]
  - Abdominal discomfort [Recovering/Resolving]
  - Pain [Unknown]

NARRATIVE: CASE EVENT DATE: 202007
